FAERS Safety Report 23116405 (Version 3)
Quarter: 2023Q4

REPORT INFORMATION
  Report Type: Spontaneous
  Country: JP (occurrence: JP)
  Receive Date: 20231027
  Receipt Date: 20231218
  Transmission Date: 20240110
  Serious: Yes (Other)
  Sender: FDA-Public Use
  Company Number: JP-KOREA IPSEN Pharma-2023-24591

PATIENT
  Age: 60 Year
  Sex: Female

DRUGS (17)
  1. LANREOTIDE ACETATE [Suspect]
     Active Substance: LANREOTIDE ACETATE
     Indication: Acromegaly
     Route: 058
  2. LANREOTIDE ACETATE [Suspect]
     Active Substance: LANREOTIDE ACETATE
     Route: 058
  3. LANREOTIDE ACETATE [Suspect]
     Active Substance: LANREOTIDE ACETATE
     Route: 058
     Dates: start: 20190717, end: 20190822
  4. METHIMAZOLE [Concomitant]
     Active Substance: METHIMAZOLE
     Indication: Hyperthyroidism
  5. LEVOTHYROXINE SODIUM [Concomitant]
     Active Substance: LEVOTHYROXINE SODIUM
     Indication: Hypothyroidism
     Dates: start: 20191128, end: 20200113
  6. TRAMCET [Concomitant]
     Active Substance: ACETAMINOPHEN\TRAMADOL
     Indication: Osteoarthritis
     Dates: start: 20200423
  7. NEUROTROPIN [Concomitant]
     Active Substance: NEUROTROPIN
     Indication: Osteoarthritis
     Dates: start: 20200423
  8. TIZANIDINE [Concomitant]
     Active Substance: TIZANIDINE
     Indication: Osteoarthritis
     Dates: start: 20200423
  9. LOXOPROFEN [Concomitant]
     Active Substance: LOXOPROFEN
     Indication: Osteoarthritis
     Dates: start: 20190606, end: 20200423
  10. KETOPROFEN [Concomitant]
     Active Substance: KETOPROFEN
     Indication: Osteoarthritis
     Dates: start: 20200423
  11. REBAMIPIDE [Concomitant]
     Active Substance: REBAMIPIDE
     Indication: Gastritis
     Dates: start: 20200113
  12. SULFAMETHOXAZOLE\TRIMETHOPRIM [Concomitant]
     Active Substance: SULFAMETHOXAZOLE\TRIMETHOPRIM
     Indication: Cystitis
     Dates: start: 20190919, end: 20190924
  13. NEXIUM [Concomitant]
     Active Substance: ESOMEPRAZOLE MAGNESIUM
     Indication: Gastrooesophageal reflux disease
     Dates: start: 20191210, end: 20230423
  14. MIYA-BM [Concomitant]
     Active Substance: CLOSTRIDIUM BUTYRICUM SPORES STRAIN M-55
     Indication: Constipation
     Dates: start: 20191211, end: 20200423
  15. AMLODIPINE [Concomitant]
     Active Substance: AMLODIPINE BESYLATE
     Indication: Hypertension
     Dates: start: 20191213, end: 20210417
  16. CORTRIL [Concomitant]
     Active Substance: HYDROCORTISONE
     Indication: Adrenal insufficiency
     Dates: start: 20191217, end: 20200116
  17. CANDESARTAN [Concomitant]
     Active Substance: CANDESARTAN
     Indication: Hypertension
     Dates: start: 20191220, end: 20200423

REACTIONS (2)
  - Diabetes insipidus [Recovered/Resolved]
  - Diarrhoea [Recovered/Resolved]

NARRATIVE: CASE EVENT DATE: 20200101
